FAERS Safety Report 9965210 (Version 1)
Quarter: 2014Q1

REPORT INFORMATION
  Report Type: Report from Study
  Country: US (occurrence: US)
  Receive Date: 20140305
  Receipt Date: 20140305
  Transmission Date: 20141002
  Serious: No
  Sender: FDA-Public Use
  Company Number: US-ABBVIE-13P-163-1129040-00

PATIENT
  Age: 54 Year
  Sex: Female

DRUGS (1)
  1. HUMIRA [Suspect]
     Indication: CROHN^S DISEASE
     Route: 058
     Dates: start: 2012

REACTIONS (9)
  - Ligament sprain [Recovering/Resolving]
  - Pain in extremity [Not Recovered/Not Resolved]
  - Road traffic accident [Recovering/Resolving]
  - Pain [Recovering/Resolving]
  - Musculoskeletal pain [Recovering/Resolving]
  - Eye penetration [Recovering/Resolving]
  - Eye swelling [Recovering/Resolving]
  - Vision blurred [Not Recovered/Not Resolved]
  - Muscle spasms [Not Recovered/Not Resolved]
